FAERS Safety Report 8415657-8 (Version None)
Quarter: 2012Q2

REPORT INFORMATION
  Report Type: 
  Country: None (occurrence: None)
  Receive Date: 20120606
  Receipt Date: 20120531
  Transmission Date: 20120825
  Serious: Yes (Life-Threatening, Hospitalization)
  Sender: FDA-Public Use
  Company Number: PHHY2012CH047171

PATIENT
  Age: 63 Year
  Sex: Male

DRUGS (14)
  1. ZINACEF [Suspect]
     Indication: BACTERIAL INFECTION
     Dosage: UNK
     Route: 041
     Dates: start: 20110901
  2. ENOXAPARIN SODIUM [Suspect]
     Dosage: UNK
     Dates: start: 20110901, end: 20120228
  3. LANTUS [Concomitant]
  4. TASIGNA [Suspect]
     Indication: ACUTE MYELOID LEUKAEMIA
     Dosage: UNK
     Dates: start: 20101001
  5. ACETAMINOPHEN [Suspect]
     Indication: PAIN
     Dosage: UNK
     Dates: start: 20110901, end: 20120101
  6. ROCEPHIN [Suspect]
     Indication: BACTERIAL INFECTION
     Dosage: UNK
     Dates: start: 20110901, end: 20120101
  7. ASPIRIN [Concomitant]
  8. IMIPENEM AND CILASTATIN SODIUM [Suspect]
     Indication: BACTERIAL INFECTION
     Dosage: UNK
     Dates: start: 20110901, end: 20120228
  9. LORAZEPAM [Concomitant]
  10. CITALOPRAM HYDROBROMIDE [Suspect]
     Indication: DEPRESSION
     Dosage: UNK
     Dates: start: 20110901, end: 20120101
  11. PRIMPERAN TAB [Concomitant]
     Dosage: UNK
     Dates: start: 20110901
  12. OXAZEPAM [Concomitant]
  13. NEXIUM [Suspect]
  14. LYRICA [Concomitant]

REACTIONS (5)
  - BILIRUBIN CONJUGATED INCREASED [None]
  - GAMMA-GLUTAMYLTRANSFERASE INCREASED [None]
  - PYREXIA [None]
  - BLOOD ALKALINE PHOSPHATASE INCREASED [None]
  - CHOLESTATIC LIVER INJURY [None]
